FAERS Safety Report 9291491 (Version 9)
Quarter: 2014Q3

REPORT INFORMATION
  Report Type: Spontaneous
  Country: US (occurrence: US)
  Receive Date: 20130515
  Receipt Date: 20140709
  Transmission Date: 20150326
  Serious: Yes (Hospitalization, Disabling, Other)
  Sender: FDA-Public Use
  Company Number: US-009507513-1305USA003501

PATIENT
  Sex: Female
  Weight: 74.83 kg

DRUGS (8)
  1. FOSAMAX [Suspect]
     Active Substance: ALENDRONATE SODIUM
     Indication: OSTEOPENIA
     Dosage: 10 MG, UNK
     Route: 048
  2. BONIVA [Suspect]
     Active Substance: IBANDRONATE SODIUM
     Indication: OSTEOPENIA
     Dosage: 150 MG, UNK
     Route: 048
     Dates: start: 20070707, end: 20100601
  3. BONIVA [Suspect]
     Active Substance: IBANDRONATE SODIUM
     Dosage: 150 MG, UNK
     Route: 048
     Dates: start: 20110118, end: 201110
  4. FOSAMAX [Suspect]
     Active Substance: ALENDRONATE SODIUM
     Indication: OSTEOPOROSIS
     Dosage: 70 MG, QW
     Route: 048
     Dates: start: 20021025, end: 20070530
  5. BYSTOLIC [Concomitant]
     Active Substance: NEBIVOLOL HYDROCHLORIDE
     Indication: HYPERTENSION
     Dosage: UNK
     Dates: start: 1980
  6. BONIVA [Suspect]
     Active Substance: IBANDRONATE SODIUM
     Dosage: 150 MG, UNK
     Route: 048
     Dates: start: 201007, end: 201012
  7. METFORMIN [Concomitant]
     Active Substance: METFORMIN HYDROCHLORIDE
     Indication: DIABETES MELLITUS
     Dosage: 500 MG, UNK
     Dates: start: 1990
  8. ALTACE [Concomitant]
     Active Substance: RAMIPRIL
     Indication: HYPERTENSION
     Dosage: UNK
     Dates: start: 1980

REACTIONS (55)
  - Intramedullary rod insertion [Unknown]
  - Cardiac disorder [Not Recovered/Not Resolved]
  - Depression [Not Recovered/Not Resolved]
  - Foot fracture [Recovered/Resolved with Sequelae]
  - Bladder repair [Unknown]
  - Adverse drug reaction [Unknown]
  - Fatigue [Unknown]
  - Bladder neoplasm [Unknown]
  - Cholelithiasis [Unknown]
  - Arthritis [Unknown]
  - Hyperhidrosis [Unknown]
  - Hip fracture [Unknown]
  - Cholecystectomy [Unknown]
  - Parathyroidectomy [Unknown]
  - Bursitis [Recovered/Resolved]
  - Foot operation [Unknown]
  - Clostridium difficile infection [Recovered/Resolved]
  - Ear operation [Unknown]
  - Cholecystitis chronic [Not Recovered/Not Resolved]
  - Renal failure [Unknown]
  - Gastrointestinal disorder [Not Recovered/Not Resolved]
  - Hyperparathyroidism [Unknown]
  - Adenotonsillectomy [Unknown]
  - Faecal incontinence [Unknown]
  - Gastric ulcer [Unknown]
  - Low turnover osteopathy [Unknown]
  - Dyslipidaemia [Unknown]
  - Depression [Unknown]
  - Exploratory operation [Unknown]
  - Fall [Unknown]
  - Foot fracture [Unknown]
  - Back pain [Unknown]
  - Diarrhoea [Not Recovered/Not Resolved]
  - Abdominal pain upper [Not Recovered/Not Resolved]
  - Pain in jaw [Unknown]
  - Intramedullary rod insertion [Unknown]
  - Wrist fracture [Unknown]
  - Dysphagia [Unknown]
  - Pain in extremity [Unknown]
  - Anxiety [Unknown]
  - Wrist surgery [Unknown]
  - Fibrocystic breast disease [Unknown]
  - Diarrhoea [Recovered/Resolved]
  - Femur fracture [Unknown]
  - Arthritis [Unknown]
  - Urinary incontinence [Unknown]
  - Weight decreased [Unknown]
  - Hyperthyroidism [Unknown]
  - Oophorectomy bilateral [Unknown]
  - Hyperuricaemia [Unknown]
  - Hepatitis [Unknown]
  - Scoliosis [Unknown]
  - Neuroma [Unknown]
  - Gastrooesophageal reflux disease [Unknown]
  - Oesophageal ulcer [Unknown]

NARRATIVE: CASE EVENT DATE: 19970307
